FAERS Safety Report 20108642 (Version 1)
Quarter: 2021Q4

REPORT INFORMATION
  Report Type: Spontaneous
  Country: KR (occurrence: KR)
  Receive Date: 20211124
  Receipt Date: 20211124
  Transmission Date: 20220303
  Serious: Yes (Death, Other)
  Sender: FDA-Public Use
  Company Number: KR-009507513-2111KOR007920

PATIENT
  Sex: Male
  Weight: 62.5 kg

DRUGS (11)
  1. PREVYMIS [Suspect]
     Active Substance: LETERMOVIR
     Indication: Antiviral prophylaxis
     Dosage: UNK, QD
     Route: 048
     Dates: start: 20210219, end: 20210529
  2. VACRAX [ACICLOVIR] [Concomitant]
     Indication: Antiviral prophylaxis
     Dosage: 1 TAB, BID
     Route: 048
     Dates: start: 20210330, end: 20210607
  3. EXJADE [Concomitant]
     Active Substance: DEFERASIROX
     Indication: Haemosiderosis
     Dosage: 3 TAB, QD
     Route: 048
     Dates: start: 20210323, end: 20210602
  4. ISONIAZID [Concomitant]
     Active Substance: ISONIAZID
     Indication: Latent tuberculosis
     Dosage: 3 TAB, QD
     Route: 048
     Dates: start: 20210217
  5. SPORANOX [Concomitant]
     Active Substance: ITRACONAZOLE
     Indication: Pneumonia fungal
     Dosage: 2 CAP, BID
     Route: 048
     Dates: start: 20210126, end: 20210519
  6. K CAB [Concomitant]
     Indication: Gastritis prophylaxis
     Dosage: 1 TAB, QD
     Route: 048
     Dates: start: 20210211
  7. K CAB [Concomitant]
     Indication: Prophylaxis
  8. HARNAL [Concomitant]
     Active Substance: TAMSULOSIN HYDROCHLORIDE
     Indication: Pollakiuria
     Dosage: 1 TAB, QD
     Route: 048
     Dates: start: 20201231, end: 20210531
  9. URSODIOL [Concomitant]
     Active Substance: URSODIOL
     Indication: Prophylaxis
     Dosage: 1 TAB, TID
     Route: 048
     Dates: start: 20210211
  10. SULFAMETHOXAZOLE\TRIMETHOPRIM [Concomitant]
     Active Substance: SULFAMETHOXAZOLE\TRIMETHOPRIM
     Indication: Infection prophylaxis
     Dosage: 1 DOSAGE FORM, QD
     Route: 048
     Dates: start: 20210305
  11. CYCIN [CIPROFLOXACIN HYDROCHLORIDE] [Concomitant]
     Indication: Pneumonia fungal
     Dosage: 1 TAB, BID
     Route: 048
     Dates: start: 20210227, end: 20210601

REACTIONS (1)
  - Septic shock [Fatal]

NARRATIVE: CASE EVENT DATE: 20210101
